FAERS Safety Report 20303505 (Version 6)
Quarter: 2022Q1

REPORT INFORMATION
  Report Type: Report from Study
  Country: JP (occurrence: JP)
  Receive Date: 20220106
  Receipt Date: 20220314
  Transmission Date: 20220423
  Serious: Yes (Life-Threatening, Hospitalization, Disabling, Other)
  Sender: FDA-Public Use
  Company Number: JP-NOVARTISPH-NVSJ2021JP021425

PATIENT
  Age: 1 Year
  Sex: Female
  Weight: 8.1 kg

DRUGS (4)
  1. ZOLGENSMA [Suspect]
     Active Substance: ONASEMNOGENE ABEPARVOVEC-XIOI
     Indication: Spinal muscular atrophy
     Dosage: 1.1X10^14 VG/KG
     Route: 041
     Dates: start: 20211222, end: 20211222
  2. PREDONINE [Concomitant]
     Active Substance: PREDNISOLONE
     Indication: Product used for unknown indication
     Dosage: UNK
     Route: 065
  3. PREDONINE [Concomitant]
     Active Substance: PREDNISOLONE
     Dosage: 2.0MG/KG
     Route: 065
     Dates: start: 20211228
  4. PREDONINE [Concomitant]
     Active Substance: PREDNISOLONE
     Dosage: 1.3MG/KG
     Route: 065
     Dates: start: 20220114

REACTIONS (16)
  - Thrombotic microangiopathy [Recovered/Resolved with Sequelae]
  - Platelet count decreased [Recovered/Resolved]
  - Urine output decreased [Recovered/Resolved]
  - Blood creatinine increased [Recovered/Resolved]
  - Pyrexia [Recovered/Resolved]
  - Pyrexia [Recovered/Resolved]
  - Decreased appetite [Recovered/Resolved]
  - Renal impairment [Recovering/Resolving]
  - Haematuria [Recovered/Resolved]
  - Proteinuria [Not Recovered/Not Resolved]
  - Blood lactate dehydrogenase increased [Recovered/Resolved]
  - Complement factor decreased [Unknown]
  - Aspartate aminotransferase increased [Recovered/Resolved]
  - Cerebral atrophy [Unknown]
  - Hepatic enzyme increased [Recovered/Resolved]
  - Alanine aminotransferase increased [Recovered/Resolved]

NARRATIVE: CASE EVENT DATE: 20211223
